FAERS Safety Report 15396709 (Version 1)
Quarter: 2018Q3

REPORT INFORMATION
  Report Type: Spontaneous
  Country: US (occurrence: US)
  Receive Date: 20180911
  Receipt Date: 20180911
  Transmission Date: 20181010
  Serious: No
  Sender: FDA-Public Use
  Company Number: None

PATIENT
  Sex: Female

DRUGS (1)
  1. MAVYRET [Suspect]
     Active Substance: GLECAPREVIR\PIBRENTASVIR
     Indication: ILL-DEFINED DISORDER
     Dosage: 3 TABLETS (100MG/40MG) DAILY ORALLY
     Route: 048
     Dates: start: 20180629

REACTIONS (5)
  - Jaundice [None]
  - Fatigue [None]
  - Pruritus [None]
  - Abdominal distension [None]
  - Weight increased [None]
